FAERS Safety Report 8978970 (Version 1)
Quarter: 2012Q4

REPORT INFORMATION
  Report Type: Report from Study
  Country: US (occurrence: US)
  Receive Date: 20121220
  Receipt Date: 20121220
  Transmission Date: 20130627
  Serious: Yes (Other)
  Sender: FDA-Public Use
  Company Number: US-JNJFOC-20121207084

PATIENT
  Sex: Female
  Weight: 81.65 kg

DRUGS (4)
  1. REMICADE [Suspect]
     Indication: ARTHRITIS ENTEROPATHIC
     Dosage: Start date: since maybe 4 years or so
     Route: 042
     Dates: start: 2008
  2. REMICADE [Suspect]
     Indication: ARTHRITIS ENTEROPATHIC
     Dosage: Start date: since maybe 4 years or so
     Route: 042
     Dates: start: 201203, end: 201203
  3. REMICADE [Suspect]
     Indication: CROHN^S DISEASE
     Dosage: Start date: since maybe 4 years or so
     Route: 042
     Dates: start: 201203, end: 201203
  4. REMICADE [Suspect]
     Indication: CROHN^S DISEASE
     Dosage: Start date: since maybe 4 years or so
     Route: 042
     Dates: start: 2008

REACTIONS (1)
  - Hypoaesthesia [Recovered/Resolved]
